FAERS Safety Report 5028492-8 (Version None)
Quarter: 2006Q2

REPORT INFORMATION
  Report Type: 
  Country: None (occurrence: None)
  Receive Date: 20060617
  Receipt Date: 20060605
  Transmission Date: 20061013
  Serious: Yes (Other)
  Sender: FDA-Public Use
  Company Number: PHBS2006JP08611

PATIENT
  Sex: Male

DRUGS (2)
  1. SERENAL [Concomitant]
     Route: 048
  2. TOFRANIL [Suspect]
     Route: 048

REACTIONS (2)
  - PARKINSON'S DISEASE [None]
  - TREMOR [None]
